FAERS Safety Report 12628746 (Version 2)
Quarter: 2021Q4

REPORT INFORMATION
  Report Type: Spontaneous
  Country: CA (occurrence: CA)
  Receive Date: 20160808
  Receipt Date: 20211119
  Transmission Date: 20220303
  Serious: Yes (Hospitalization, Other)
  Sender: FDA-Public Use
  Company Number: None

PATIENT
  Age: 39 Year
  Sex: Male

DRUGS (6)
  1. ESCITALOPRAM [Interacting]
     Active Substance: ESCITALOPRAM OXALATE
  2. QUETIAPINE FUMARATE [Interacting]
     Active Substance: QUETIAPINE FUMARATE
     Route: 048
  3. BUPROPION HYDROCHLORIDE [Interacting]
     Active Substance: BUPROPION HYDROCHLORIDE
  4. OLANZAPINE [Interacting]
     Active Substance: OLANZAPINE
  5. PHENYTOIN [Interacting]
     Active Substance: PHENYTOIN
  6. PRIMIDONE [Interacting]
     Active Substance: PRIMIDONE

REACTIONS (3)
  - Overdose [Unknown]
  - Drug interaction [Unknown]
  - Serotonin syndrome [Recovered/Resolved]
